FAERS Safety Report 21833503 (Version 3)
Quarter: 2023Q1

REPORT INFORMATION
  Report Type: Other
  Country: GR (occurrence: GR)
  Receive Date: 20230107
  Receipt Date: 20230304
  Transmission Date: 20230418
  Serious: Yes (Other)
  Sender: FDA-Public Use
  Company Number: GR-CELLTRION INC.-2022GR022081

PATIENT

DRUGS (27)
  1. RITUXIMAB [Suspect]
     Active Substance: RITUXIMAB
     Indication: Richter^s syndrome
     Dosage: 1/MAY/2015 TO 1/NOV/2016: 1ST LINE
     Route: 042
     Dates: start: 20220715, end: 20220809
  2. RITUXIMAB [Suspect]
     Active Substance: RITUXIMAB
     Indication: Chronic lymphocytic leukaemia
     Dosage: UNK
     Route: 042
     Dates: start: 20150501, end: 20161101
  3. CYTARABINE [Suspect]
     Active Substance: CYTARABINE
     Indication: Richter^s syndrome
     Dosage: 5 LINE THERAPY
     Route: 042
     Dates: start: 20220822, end: 20220826
  4. CYCLOPHOSPHAMIDE\DOXORUBICIN\PREDNISONE\VINCRISTINE [Suspect]
     Active Substance: CYCLOPHOSPHAMIDE\DOXORUBICIN\PREDNISONE\VINCRISTINE
     Indication: Richter^s syndrome
     Dosage: 4 LINE THERAPY
     Route: 042
     Dates: start: 20220715, end: 20220809
  5. CYCLOPHOSPHAMIDE [Suspect]
     Active Substance: CYCLOPHOSPHAMIDE
     Indication: Richter^s syndrome
     Dosage: UNK
     Route: 042
     Dates: start: 20220715, end: 20220809
  6. CISPLATIN [Suspect]
     Active Substance: CISPLATIN
     Indication: Richter^s syndrome
     Dosage: 5 LINE THERAPY
     Route: 042
     Dates: start: 20220822, end: 20220826
  7. CYCLOPHOSPHAMIDE [Suspect]
     Active Substance: CYCLOPHOSPHAMIDE
     Indication: Chronic lymphocytic leukaemia
     Dosage: 1 LINE THERAPY
     Route: 042
     Dates: start: 20150501, end: 20161101
  8. CYCLOPHOSPHAMIDE [Suspect]
     Active Substance: CYCLOPHOSPHAMIDE
     Indication: Richter^s syndrome
  9. DEXAMETHASONE [Suspect]
     Active Substance: DEXAMETHASONE
     Indication: Richter^s syndrome
     Dosage: 5LINE THERAPY
     Route: 042
     Dates: start: 20220822, end: 20220826
  10. DOXORUBICIN HYDROCHLORIDE [Suspect]
     Active Substance: DOXORUBICIN HYDROCHLORIDE
     Indication: Richter^s syndrome
     Dosage: UNK
     Route: 042
     Dates: start: 20220715, end: 20220809
  11. ETOPOSIDE [Suspect]
     Active Substance: ETOPOSIDE
     Indication: Richter^s syndrome
     Dosage: UNK
     Route: 042
     Dates: start: 20220715, end: 20220809
  12. FLUDARABINE [Suspect]
     Active Substance: FLUDARABINE PHOSPHATE
     Indication: Richter^s syndrome
     Dosage: 1 LINE THERAPY
     Route: 042
     Dates: start: 20150501, end: 20161101
  13. FLUDARABINE [Suspect]
     Active Substance: FLUDARABINE PHOSPHATE
     Indication: Chronic lymphocytic leukaemia
  14. FLUDARABINE PHOSPHATE [Suspect]
     Active Substance: FLUDARABINE PHOSPHATE
     Indication: Chronic lymphocytic leukaemia
     Dosage: 1 LINE THERAPY
     Route: 042
     Dates: start: 20150501, end: 20161101
  15. IMBRUVICA [Suspect]
     Active Substance: IBRUTINIB
     Indication: Chronic lymphocytic leukaemia
     Dosage: 2 LINE THERAPY
     Route: 042
     Dates: start: 20180424, end: 20200801
  16. IMBRUVICA [Suspect]
     Active Substance: IBRUTINIB
     Indication: Richter^s syndrome
  17. OFATUMUMAB [Suspect]
     Active Substance: OFATUMUMAB
     Indication: Richter^s syndrome
     Dosage: 1 LINE THERAPY
     Dates: start: 20150501, end: 20161101
  18. PREDNISONE [Suspect]
     Active Substance: PREDNISONE
     Indication: Richter^s syndrome
     Dosage: UNK
     Route: 042
     Dates: start: 20220715, end: 20220809
  19. VENETOCLAX [Suspect]
     Active Substance: VENETOCLAX
     Indication: Richter^s syndrome
     Dosage: 3 LINE THERAPY
     Route: 042
     Dates: start: 20200813, end: 20220714
  20. VINCRISTINE [Suspect]
     Active Substance: VINCRISTINE
     Indication: Richter^s syndrome
     Dosage: UNK
     Route: 042
     Dates: start: 20220715, end: 20220809
  21. ACYCLOVIR [Concomitant]
     Active Substance: ACYCLOVIR
     Indication: Product used for unknown indication
     Dosage: UNK
  22. CYCLOPHOSPHAMIDE [Concomitant]
     Active Substance: CYCLOPHOSPHAMIDE
     Indication: Richter^s syndrome
     Dosage: 1 LINE THERAPY
     Route: 042
     Dates: start: 20150501, end: 20161101
  23. FLUCONAZOLE [Concomitant]
     Active Substance: FLUCONAZOLE
     Indication: Product used for unknown indication
  24. ONDA [Concomitant]
     Indication: Product used for unknown indication
  25. ONDANSETRON/KABI [Concomitant]
     Indication: Product used for unknown indication
  26. TRANEXAMIC ACID [Concomitant]
     Active Substance: TRANEXAMIC ACID
     Indication: Product used for unknown indication
     Dosage: UNK
  27. ALLOPURINOL [Concomitant]
     Active Substance: ALLOPURINOL
     Indication: Product used for unknown indication
     Dosage: UNK

REACTIONS (6)
  - Febrile neutropenia [Unknown]
  - Disease progression [Unknown]
  - Drug hypersensitivity [Unknown]
  - Bacterial infection [Unknown]
  - Therapy partial responder [Unknown]
  - Off label use [Unknown]
